FAERS Safety Report 19587594 (Version 1)
Quarter: 2021Q3

REPORT INFORMATION
  Report Type: Report from Study
  Country: CO (occurrence: CO)
  Receive Date: 20210721
  Receipt Date: 20210721
  Transmission Date: 20211014
  Serious: Yes (Other)
  Sender: FDA-Public Use
  Company Number: CO-BRISTOL-MYERS SQUIBB COMPANY-BMS-2021-023054

PATIENT
  Age: 63 Year
  Sex: Female
  Weight: 54 kg

DRUGS (1)
  1. NIVOLUMAB [Suspect]
     Active Substance: NIVOLUMAB
     Indication: LUNG NEOPLASM MALIGNANT
     Dosage: 162 MILLIGRAM EVERY 15 DAYS
     Route: 042
     Dates: start: 20201214, end: 20210219

REACTIONS (10)
  - Inflammation [Recovering/Resolving]
  - Anxiety [Recovering/Resolving]
  - Headache [Unknown]
  - Migraine [Recovered/Resolved]
  - Cataract [Recovering/Resolving]
  - Noninfective encephalitis [Recovering/Resolving]
  - Seizure [Unknown]
  - Dry mouth [Unknown]
  - Off label use [Unknown]
  - Panic attack [Unknown]

NARRATIVE: CASE EVENT DATE: 20210303
